FAERS Safety Report 16642055 (Version 1)
Quarter: 2019Q3

REPORT INFORMATION
  Report Type: Spontaneous
  Country: CA (occurrence: CA)
  Receive Date: 20190729
  Receipt Date: 20190729
  Transmission Date: 20191004
  Serious: Yes (Other)
  Sender: FDA-Public Use
  Company Number: CA-PFIZER INC-2019318643

PATIENT
  Age: 70 Year
  Sex: Female

DRUGS (4)
  1. MICARDIS [Concomitant]
     Active Substance: TELMISARTAN
     Dosage: UNK UNK, 1X/DAY
     Route: 065
  2. ROSUVASTATIN CALCIUM. [Concomitant]
     Active Substance: ROSUVASTATIN CALCIUM
     Dosage: 5 MG, 1X/DAY
     Route: 065
  3. SIMPONI [Concomitant]
     Active Substance: GOLIMUMAB
     Dosage: UNK
     Route: 065
  4. AMLODIPINE BESILATE [Suspect]
     Active Substance: AMLODIPINE BESYLATE
     Dosage: 5 MG, 1X/DAY
     Route: 065

REACTIONS (3)
  - Impaired healing [Recovered/Resolved]
  - Hand fracture [Recovered/Resolved]
  - Rheumatoid arthritis [Recovered/Resolved]
